FAERS Safety Report 5603710-3 (Version None)
Quarter: 2008Q1

REPORT INFORMATION
  Report Type: 
  Country: None (occurrence: None)
  Receive Date: 20080128
  Receipt Date: 20080121
  Transmission Date: 20080703
  Serious: Yes (Other)
  Sender: FDA-Public Use
  Company Number: JP-BAYER-200810071BYL

PATIENT
  Age: 84 Year
  Sex: Male

DRUGS (2)
  1. ASPIRIN [Suspect]
     Route: 048
     Dates: start: 20070601, end: 20070701
  2. TICLOPIDINE HCL [Suspect]
     Route: 048
     Dates: start: 20070601, end: 20070701

REACTIONS (1)
  - AGRANULOCYTOSIS [None]
